FAERS Safety Report 9468174 (Version 1)
Quarter: 2013Q3

REPORT INFORMATION
  Report Type: Report from Study
  Country: US (occurrence: US)
  Receive Date: 20130821
  Receipt Date: 20130821
  Transmission Date: 20140515
  Serious: Yes (Other)
  Sender: FDA-Public Use
  Company Number: US-ABBOTT-13P-163-1132910-00

PATIENT
  Age: 35 Year
  Sex: Female

DRUGS (20)
  1. HUMIRA [Suspect]
     Indication: CROHN^S DISEASE
     Dates: start: 20130503, end: 20130503
  2. HUMIRA [Suspect]
     Dates: start: 20130517, end: 20130517
  3. HUMIRA [Suspect]
  4. PREDNISONE [Suspect]
     Indication: PRODUCT USED FOR UNKNOWN INDICATION
  5. PREDNISONE [Suspect]
  6. LEVOTHYROXINE [Concomitant]
     Indication: HYPOTHYROIDISM
     Dosage: 75MCG DAILY
  7. ZOFRAN [Concomitant]
     Indication: NAUSEA
  8. ELMIRON [Concomitant]
     Indication: CYSTITIS INTERSTITIAL
  9. STERILE WATER [Concomitant]
     Indication: BLADDER DISORDER
  10. STERILE WATER [Concomitant]
     Indication: CYSTITIS INTERSTITIAL
  11. CAMBIA [Concomitant]
     Indication: MIGRAINE PROPHYLAXIS
  12. SEASONIQUE [Concomitant]
     Indication: CONTRACEPTION
     Dosage: DAILY
  13. CLARITIN [Concomitant]
     Indication: SEASONAL ALLERGY
     Dosage: 10MG DAILY
  14. TRAMADOL HCL [Concomitant]
     Indication: INSOMNIA
     Dosage: AT SLEEP
  15. LIDOCAINE [Concomitant]
     Indication: BLADDER DISORDER
  16. LIDOCAINE [Concomitant]
     Indication: CYSTITIS INTERSTITIAL
  17. SODIUM BICARBONATE [Concomitant]
     Indication: BLADDER DISORDER
  18. SODIUM BICARBONATE [Concomitant]
     Indication: CYSTITIS INTERSTITIAL
  19. STERILE WATER [Concomitant]
     Indication: BLADDER DISORDER
  20. STERILE WATER [Concomitant]
     Indication: CYSTITIS INTERSTITIAL

REACTIONS (7)
  - Eyelid ptosis [Not Recovered/Not Resolved]
  - Visual field defect [Not Recovered/Not Resolved]
  - Diarrhoea [Not Recovered/Not Resolved]
  - Arthritis [Not Recovered/Not Resolved]
  - Vulvovaginal discomfort [Not Recovered/Not Resolved]
  - Fungal infection [Not Recovered/Not Resolved]
  - Drug effect decreased [Not Recovered/Not Resolved]
